FAERS Safety Report 5958026-2 (Version None)
Quarter: 2008Q4

REPORT INFORMATION
  Report Type: 
  Country: None (occurrence: None)
  Receive Date: 20081117
  Receipt Date: 20081031
  Transmission Date: 20090506
  Serious: Yes (Other)
  Sender: FDA-Public Use
  Company Number: SPV1-2008-02365

PATIENT
  Sex: Male

DRUGS (1)
  1. DAYTRANA [Suspect]
     Route: 062
     Dates: end: 20081001

REACTIONS (2)
  - SOCIAL AVOIDANT BEHAVIOUR [None]
  - SUICIDAL IDEATION [None]
